FAERS Safety Report 4354186-8 (Version None)
Quarter: 2004Q2

REPORT INFORMATION
  Report Type: 
  Country: None (occurrence: None)
  Receive Date: 20040503
  Receipt Date: 20420419
  Transmission Date: 20050107
  Serious: Yes (Hospitalization, Disabling)
  Sender: FDA-Public Use
  Company Number: 2004-SW-00049DB

PATIENT
  Age: 32 Year
  Sex: Female

DRUGS (5)
  1. VIRAMUNE [Suspect]
     Indication: HIV INFECTION
     Dosage: 400 MG (200 MG, 1 IN 12 HR)
     Dates: start: 20040106, end: 20040126
  2. EPIVIR [Concomitant]
  3. ZIAGEN [Concomitant]
  4. FONTEX (FLUOXETINE HYDROCHLORIDE) [Concomitant]
  5. VIREAD [Concomitant]

REACTIONS (10)
  - ABDOMINAL PAIN [None]
  - ABDOMINAL PAIN UPPER [None]
  - ANOREXIA [None]
  - FATIGUE [None]
  - HEPATIC ENZYME INCREASED [None]
  - JAUNDICE [None]
  - MALAISE [None]
  - MYALGIA [None]
  - PYREXIA [None]
  - THROMBOCYTOPENIA [None]
